FAERS Safety Report 11190050 (Version 1)
Quarter: 2015Q2

REPORT INFORMATION
  Report Type: Spontaneous
  Country: US (occurrence: US)
  Receive Date: 20150615
  Receipt Date: 20150615
  Transmission Date: 20150821
  Serious: No
  Sender: FDA-Public Use
  Company Number: US-PFIZER INC-2015199027

PATIENT
  Age: 9 Year
  Sex: Male
  Weight: 49 kg

DRUGS (1)
  1. QUILLIVANT XR [Suspect]
     Active Substance: METHYLPHENIDATE HYDROCHLORIDE
     Dosage: 1 TEASPOON, DAILY

REACTIONS (1)
  - Psychomotor hyperactivity [Not Recovered/Not Resolved]
